FAERS Safety Report 6763870-8 (Version None)
Quarter: 2010Q2

REPORT INFORMATION
  Report Type: 
  Country: None (occurrence: None)
  Receive Date: 20100608
  Receipt Date: 20100524
  Transmission Date: 20101027
  Serious: Yes (Hospitalization)
  Sender: FDA-Public Use
  Company Number: 10-065

PATIENT
  Age: 72 Year
  Sex: Female

DRUGS (6)
  1. CEFEPIME [Suspect]
     Indication: OSTEOMYELITIS
     Dosage: 1 G EVERY 12 HOURS, IV
     Route: 042
  2. IBUPROFEN [Concomitant]
  3. OXYCONTIN [Concomitant]
  4. CILASTAZOL [Concomitant]
  5. OXYCODONE AND ACETAMINOPHEN [Concomitant]
  6. ALBUTEROL/IPRATROPIUM INHALER [Concomitant]

REACTIONS (4)
  - AGITATION [None]
  - SOMNOLENCE [None]
  - STATUS EPILEPTICUS [None]
  - UNRESPONSIVE TO STIMULI [None]
